FAERS Safety Report 17210893 (Version 2)
Quarter: 2020Q1

REPORT INFORMATION
  Report Type: Spontaneous
  Country: US (occurrence: US)
  Receive Date: 20191227
  Receipt Date: 20200113
  Transmission Date: 20200409
  Serious: No
  Sender: FDA-Public Use
  Company Number: US-ALLERGAN-1952625US

PATIENT
  Sex: Female

DRUGS (3)
  1. BOTOX COSMETIC [Suspect]
     Active Substance: ONABOTULINUMTOXINA
     Indication: SKIN WRINKLING
     Dosage: 20 UNITS, SINGLE
     Dates: start: 20191014, end: 20191014
  2. JUVEDERM [Concomitant]
     Active Substance: HYALURONIC ACID
     Dosage: UNK
     Dates: start: 20190903
  3. BOTOX COSMETIC [Suspect]
     Active Substance: ONABOTULINUMTOXINA
     Indication: SKIN WRINKLING
     Dosage: 16 UNITS, SINGLE
     Dates: start: 20190903, end: 20190903

REACTIONS (15)
  - Asthenia [Recovered/Resolved]
  - Night sweats [Recovered/Resolved]
  - Dysphonia [Recovered/Resolved]
  - Headache [Recovered/Resolved]
  - Malaise [Recovered/Resolved]
  - Aphasia [Recovered/Resolved]
  - Pharyngeal swelling [Recovered/Resolved]
  - Pain [Recovered/Resolved]
  - Dysphagia [Recovered/Resolved]
  - Facial pain [Recovered/Resolved]
  - Gait disturbance [Recovered/Resolved]
  - Oropharyngeal discomfort [Recovered/Resolved]
  - Fatigue [Recovered/Resolved]
  - Nasopharyngitis [Unknown]
  - Muscular weakness [Recovered/Resolved]

NARRATIVE: CASE EVENT DATE: 201910
